FAERS Safety Report 7984047-4 (Version None)
Quarter: 2011Q4

REPORT INFORMATION
  Report Type: 
  Country: None (occurrence: None)
  Receive Date: 20111216
  Receipt Date: 20111208
  Transmission Date: 20120403
  Serious: Yes (Hospitalization, Other)
  Sender: FDA-Public Use
  Company Number: IT-PFIZER INC-2011169633

PATIENT
  Age: 75 Year
  Sex: Female

DRUGS (9)
  1. RAMIPRIL [Suspect]
     Dosage: 2.5 MG, UNK
     Route: 048
     Dates: start: 20110417, end: 20110708
  2. WARFARIN [Concomitant]
     Indication: ATRIAL FIBRILLATION
     Dosage: UNK
     Dates: start: 20101201
  3. PAROXETINE HYDROCHLORIDE [Concomitant]
  4. KANRENOL [Suspect]
     Indication: HYPERTENSION
     Dosage: 1 DF, 1X/DAY
     Route: 048
     Dates: start: 20110417
  5. MINITRAN [Concomitant]
     Dosage: UNK
     Dates: start: 20110528
  6. SPIRIVA [Concomitant]
  7. ISOPTIN [Concomitant]
     Indication: HYPERTENSIVE CARDIOMYOPATHY
  8. PANTOPRAZOLE SODIUM [Concomitant]
  9. LASIX [Concomitant]
     Dosage: UNK
     Dates: start: 20090707

REACTIONS (3)
  - DROP ATTACKS [None]
  - SYNCOPE [None]
  - HIP FRACTURE [None]
